FAERS Safety Report 5612608-6 (Version None)
Quarter: 2008Q1

REPORT INFORMATION
  Report Type: 
  Country: None (occurrence: None)
  Receive Date: 20080204
  Receipt Date: 20080125
  Transmission Date: 20080703
  Serious: Yes (Disabling)
  Sender: FDA-Public Use
  Company Number: B0501432A

PATIENT
  Age: 61 Year
  Sex: Male

DRUGS (14)
  1. ADARTREL [Suspect]
     Indication: PARKINSON'S DISEASE
     Dosage: 4MG THREE TIMES PER DAY
     Route: 048
     Dates: start: 20071205, end: 20071228
  2. REQUIP [Suspect]
     Indication: PARKINSON'S DISEASE
  3. MADOPAR [Concomitant]
     Indication: PARKINSON'S DISEASE
     Dosage: 125MG IN THE MORNING
     Route: 048
  4. SELEGILINE HCL [Concomitant]
     Indication: PARKINSON'S DISEASE
     Dosage: 5MG TWICE PER DAY
     Route: 048
  5. VITAMIN E [Concomitant]
     Dosage: 100MG PER DAY
     Route: 048
  6. TRAMADOL HCL [Concomitant]
     Indication: PAIN
     Dosage: 150MG TWICE PER DAY
     Route: 048
  7. AMITRIPTYLINE HCL [Concomitant]
     Dosage: 25MG AT NIGHT
     Route: 048
  8. DIAZEPAM [Concomitant]
     Dosage: 2MG TWICE PER DAY
     Route: 065
  9. DICLOMAX [Concomitant]
     Dosage: 100MG IN THE MORNING
     Route: 065
  10. SINEMET CR [Concomitant]
     Route: 065
  11. LACTULOSE [Concomitant]
     Route: 065
  12. MOVICOL [Concomitant]
     Route: 065
  13. LEVOTHYROXINE SODIUM [Concomitant]
     Route: 065
  14. SNO TEARS [Concomitant]
     Route: 065

REACTIONS (10)
  - CONSTIPATION [None]
  - DRUG INEFFECTIVE [None]
  - DYSKINESIA [None]
  - IMMOBILE [None]
  - MOBILITY DECREASED [None]
  - MUSCULOSKELETAL STIFFNESS [None]
  - OFF LABEL USE [None]
  - PARKINSON'S DISEASE [None]
  - SLUGGISHNESS [None]
  - SPEECH DISORDER [None]
